FAERS Safety Report 16047009 (Version 4)
Quarter: 2019Q2

REPORT INFORMATION
  Report Type: Spontaneous
  Country: US (occurrence: US)
  Receive Date: 20190307
  Receipt Date: 20190607
  Transmission Date: 20190711
  Serious: Yes (Other)
  Sender: FDA-Public Use
  Company Number: US-BAYER-2019-046901

PATIENT
  Age: 22 Year
  Sex: Female
  Weight: 107.95 kg

DRUGS (5)
  1. MIRENA [Suspect]
     Active Substance: LEVONORGESTREL
     Indication: MENORRHAGIA
  2. MIRENA [Suspect]
     Active Substance: LEVONORGESTREL
     Indication: CONTRACEPTION
  3. MIRENA [Suspect]
     Active Substance: LEVONORGESTREL
     Indication: CONTRACEPTION
  4. MIRENA [Suspect]
     Active Substance: LEVONORGESTREL
     Indication: MENORRHAGIA
     Dosage: 20 MCG/24HR, CONT
     Route: 015
     Dates: start: 20190214, end: 20190304
  5. KETOROLAC [Concomitant]
     Active Substance: KETOROLAC\KETOROLAC TROMETHAMINE
     Dosage: 2 ML
     Route: 030
     Dates: start: 20190304

REACTIONS (10)
  - Post procedural haemorrhage [None]
  - Device expulsion [Recovered/Resolved]
  - Medical device pain [None]
  - Vaginal odour [None]
  - Perineal pain [None]
  - Pain [None]
  - Abdominal pain lower [None]
  - Coital bleeding [None]
  - Procedural pain [None]
  - Pelvic pain [None]

NARRATIVE: CASE EVENT DATE: 20190227
